FAERS Safety Report 9103154 (Version 4)
Quarter: 2013Q2

REPORT INFORMATION
  Report Type: Spontaneous
  Country: US (occurrence: US)
  Receive Date: 20130219
  Receipt Date: 20130515
  Transmission Date: 20140414
  Serious: Yes (Death, Hospitalization)
  Sender: FDA-Public Use
  Company Number: US-GILEAD-2013-0069588

PATIENT
  Age: 55 Year
  Sex: Male

DRUGS (10)
  1. LETAIRIS [Suspect]
     Indication: PULMONARY HYPERTENSION
     Dosage: 5 MG, QD
     Route: 048
     Dates: start: 20121214, end: 20130329
  2. LETAIRIS [Suspect]
     Indication: HEPATOPULMONARY SYNDROME
  3. HALDOL                             /00027401/ [Concomitant]
  4. MORPHINE SULFATE [Concomitant]
  5. ATIVAN [Concomitant]
  6. ISONIAZID [Concomitant]
  7. DIGOXIN [Concomitant]
  8. ALDACTONE                          /00006201/ [Concomitant]
  9. LACTULOSE [Concomitant]
  10. PROPRANOLOL [Concomitant]

REACTIONS (9)
  - Hepatorenal failure [Fatal]
  - Hepatocellular carcinoma [Fatal]
  - Hepatic cirrhosis [Fatal]
  - Hepatitis C [Fatal]
  - Sepsis [Fatal]
  - Peritonitis [Fatal]
  - Hepatic failure [Unknown]
  - Unevaluable event [Unknown]
  - Liver function test abnormal [Unknown]
